FAERS Safety Report 5782972-6 (Version None)
Quarter: 2008Q2

REPORT INFORMATION
  Report Type: 
  Country: None (occurrence: None)
  Receive Date: 20080624
  Receipt Date: 20080617
  Transmission Date: 20081010
  Serious: Yes (Other)
  Sender: FDA-Public Use
  Company Number: JP-AVENTIS-200811856JP

PATIENT
  Age: 86 Year
  Sex: Female

DRUGS (1)
  1. LASIX [Suspect]
     Route: 048
     Dates: end: 20080528

REACTIONS (2)
  - BLISTER [None]
  - SKIN EROSION [None]
